FAERS Safety Report 9109580 (Version 1)
Quarter: 2013Q1

REPORT INFORMATION
  Report Type: Spontaneous
  Country: BR (occurrence: BR)
  Receive Date: 20130222
  Receipt Date: 20130222
  Transmission Date: 20140127
  Serious: Yes (Life-Threatening, Hospitalization)
  Sender: FDA-Public Use
  Company Number: BR-009507513-1302BRA009285

PATIENT
  Age: 68 Year
  Sex: Male

DRUGS (2)
  1. VYTORIN [Suspect]
     Indication: BLOOD CHOLESTEROL INCREASED
     Dosage: 10/20 MG, QD
     Route: 048
     Dates: start: 201302, end: 201302
  2. ENALAPRIL MALEATE (GENERIC DRUG) [Concomitant]
     Indication: HYPERTENSION
     Dosage: 1 DF, QD

REACTIONS (1)
  - Drug-induced liver injury [Recovered/Resolved]
